FAERS Safety Report 8839890 (Version 1)
Quarter: 2012Q4

REPORT INFORMATION
  Report Type: Report from Study
  Country: JP (occurrence: JP)
  Receive Date: 20121015
  Receipt Date: 20121015
  Transmission Date: 20130627
  Serious: Yes (Other)
  Sender: FDA-Public Use
  Company Number: JP-009507513-2011SP059273

PATIENT
  Age: 69 Year
  Sex: Male
  Weight: 75 kg

DRUGS (14)
  1. RIBAVIRIN [Suspect]
     Indication: HEPATITIS C
     Dosage: 400 mg, bid
     Route: 048
     Dates: start: 20100803, end: 20100816
  2. RIBAVIRIN [Suspect]
     Dosage: 400 mg, bid
     Route: 048
     Dates: start: 20110323, end: 20110405
  3. RIBAVIRIN [Suspect]
     Dosage: 400 mg, bid
     Route: 048
     Dates: start: 20100818, end: 20101201
  4. PEG-INTRON [Suspect]
     Indication: HEPATITIS C
     Dosage: 100 Microgram, qw
     Route: 058
     Dates: start: 20100818, end: 20101201
  5. PEG-INTRON [Suspect]
     Dosage: UNK
  6. INTERFERON (UNSPECIFIED) [Suspect]
     Indication: HEPATITIS C
     Dosage: 3 million IU, BID
     Route: 041
     Dates: start: 20100803, end: 20100816
  7. INTERFERON (UNSPECIFIED) [Suspect]
     Dosage: 3 million IU, bid
     Dates: start: 20110323, end: 20110405
  8. PEGASYS [Suspect]
     Indication: HEPATITIS C
     Dosage: 180 Microgram, qw
     Route: 030
     Dates: start: 20101208, end: 20110316
  9. PEGASYS [Suspect]
     Dosage: 180 Microgram, qw
     Route: 030
     Dates: start: 20110413, end: 20120208
  10. COPEGUS [Suspect]
     Indication: HEPATITIS C
     Dosage: 800 mg, QD
     Route: 048
     Dates: start: 20101208, end: 20110322
  11. COPEGUS [Suspect]
     Dosage: 800 mg, QD
     Route: 048
     Dates: start: 20110413, end: 20120208
  12. URSO [Concomitant]
     Indication: HEPATITIS C
     Dosage: 400 mg, QD
     Route: 048
     Dates: end: 20100802
  13. AMMONIUM GLYCYRRHIZATE (+) CYSTEINE HYDROCHLORIDE (+) GLYCINE [Concomitant]
     Indication: HEPATITIS C
     Dosage: 60 ml, tiw
     Route: 051
     Dates: end: 20100720
  14. ADALAT CR [Concomitant]
     Indication: HYPERTENSION
     Dosage: 20 mg, qd

REACTIONS (5)
  - White blood cell count decreased [Recovering/Resolving]
  - Anaemia [Not Recovered/Not Resolved]
  - Platelet count decreased [Recovered/Resolved]
  - Pyrexia [Recovering/Resolving]
  - Pyrexia [Recovered/Resolved]
